FAERS Safety Report 7065792-4 (Version None)
Quarter: 2010Q4

REPORT INFORMATION
  Report Type: 
  Country: None (occurrence: None)
  Receive Date: 20101027
  Receipt Date: 20101019
  Transmission Date: 20110411
  Serious: Yes (Hospitalization)
  Sender: FDA-Public Use
  Company Number: US-ELI_LILLY_AND_COMPANY-US201010004778

PATIENT
  Sex: Male

DRUGS (5)
  1. HUMALOG [Suspect]
     Indication: DIABETES MELLITUS
     Dosage: 3 U, UNK
     Dates: start: 20080101
  2. HUMALOG [Suspect]
     Dosage: UNK, AS NEEDED
     Dates: start: 20080101
  3. HUMALOG [Suspect]
     Dosage: 3 U, UNK
     Dates: start: 20080101
  4. HUMALOG [Suspect]
     Dosage: UNK, AS NEEDED
     Dates: start: 20080101
  5. LANTUS [Concomitant]

REACTIONS (4)
  - HYPERGLYCAEMIA [None]
  - MALAISE [None]
  - TREMOR [None]
  - VOMITING [None]
